FAERS Safety Report 13552600 (Version 2)
Quarter: 2017Q3

REPORT INFORMATION
  Report Type: Report from Study
  Country: None (occurrence: US)
  Receive Date: 20170517
  Receipt Date: 20170823
  Transmission Date: 20171127
  Serious: Yes (Hospitalization)
  Sender: FDA-Public Use
  Company Number: US-ABBVIE-17K-163-1972838-00

PATIENT
  Sex: Female
  Weight: 84.44 kg

DRUGS (4)
  1. HUMIRA [Suspect]
     Active Substance: ADALIMUMAB
     Indication: CROHN^S DISEASE
     Route: 058
     Dates: start: 2014, end: 201701
  2. HUMIRA [Suspect]
     Active Substance: ADALIMUMAB
     Route: 058
     Dates: start: 201701, end: 20170421
  3. JUNEL [Concomitant]
     Active Substance: ETHINYL ESTRADIOL\NORETHINDRONE ACETATE
     Indication: CONTRACEPTION
  4. CLARITIN [Concomitant]
     Active Substance: LORATADINE
     Indication: SEASONAL ALLERGY

REACTIONS (16)
  - Lethargy [Recovered/Resolved]
  - Hypophagia [Unknown]
  - Pyrexia [Recovered/Resolved]
  - Hepatic enzyme increased [Unknown]
  - Crohn^s disease [Recovering/Resolving]
  - Skin discolouration [Unknown]
  - Cyanosis [Not Recovered/Not Resolved]
  - Injection site pain [Recovered/Resolved]
  - Intestinal perforation [Recovering/Resolving]
  - Cyanosis [Recovered/Resolved]
  - Fatigue [Not Recovered/Not Resolved]
  - Sepsis [Recovered/Resolved]
  - Headache [Not Recovered/Not Resolved]
  - Drug effect decreased [Unknown]
  - Weight decreased [Not Recovered/Not Resolved]
  - Ear infection [Recovering/Resolving]

NARRATIVE: CASE EVENT DATE: 2014
